FAERS Safety Report 7115270-9 (Version None)
Quarter: 2010Q4

REPORT INFORMATION
  Report Type: 
  Country: None (occurrence: None)
  Receive Date: 20101122
  Receipt Date: 20101109
  Transmission Date: 20110411
  Serious: Yes (Hospitalization)
  Sender: FDA-Public Use
  Company Number: IT-JNJFOC-20101007469

PATIENT
  Sex: Male

DRUGS (2)
  1. HALOPERIDOL [Suspect]
     Indication: AGITATION
     Dosage: 10 MG/ ML
     Route: 048
  2. DEPAKENE [Concomitant]
     Indication: ILL-DEFINED DISORDER
     Route: 048

REACTIONS (2)
  - DRUG ABUSE [None]
  - FACIAL SPASM [None]
